FAERS Safety Report 10183341 (Version 1)
Quarter: 2014Q2

REPORT INFORMATION
  Report Type: Spontaneous
  Country: IN (occurrence: IN)
  Receive Date: 20140520
  Receipt Date: 20140520
  Transmission Date: 20141212
  Serious: Yes (Life-Threatening)
  Sender: FDA-Public Use
  Company Number: IN-ASTRAZENECA-2014SE33602

PATIENT
  Age: 29 Year
  Sex: Female
  Weight: 55 kg

DRUGS (3)
  1. BUPIVACAINE [Suspect]
     Indication: SPINAL ANAESTHESIA
     Route: 053
  2. MIDAZOLAM [Concomitant]
  3. ONDANSETRON [Concomitant]
     Route: 042

REACTIONS (2)
  - Myocardial stunning [Recovering/Resolving]
  - Cardiac arrest [Recovering/Resolving]
